FAERS Safety Report 21048995 (Version 2)
Quarter: 2022Q3

REPORT INFORMATION
  Report Type: Spontaneous
  Country: JP (occurrence: JP)
  Receive Date: 20220706
  Receipt Date: 20220831
  Transmission Date: 20221027
  Serious: Yes (Death)
  Sender: FDA-Public Use
  Company Number: A202200296-001

PATIENT
  Age: 77 Year
  Sex: Male
  Weight: 45 kg

DRUGS (10)
  1. BENDAMUSTINE HYDROCHLORIDE [Suspect]
     Active Substance: BENDAMUSTINE HYDROCHLORIDE
     Indication: Follicular lymphoma
     Dosage: 90 MG/M2
     Route: 042
     Dates: start: 20190516, end: 20191008
  2. RADIATION THERAPY [Suspect]
     Active Substance: RADIATION THERAPY
     Indication: Axillary mass
     Dosage: UNK, 20GY X 20, 40GY
     Route: 065
     Dates: start: 20220302, end: 20220330
  3. SULFAMETHOXAZOLE\TRIMETHOPRIM [Concomitant]
     Active Substance: SULFAMETHOXAZOLE\TRIMETHOPRIM
     Indication: Prophylaxis
     Dosage: 1 DF, QD
     Route: 048
     Dates: start: 20170223, end: 20220423
  4. REBAMIPIDE [Concomitant]
     Active Substance: REBAMIPIDE
     Indication: Abdominal discomfort
     Dosage: 100 MG, Q8H
     Route: 048
     Dates: start: 20170223, end: 20220423
  5. FEBUXOSTAT [Concomitant]
     Active Substance: FEBUXOSTAT
     Indication: Hyperuricaemia
     Dosage: 20 MG, QD
     Route: 048
     Dates: start: 20170223, end: 20220423
  6. PANTETHINE [Concomitant]
     Active Substance: PANTETHINE
     Indication: Constipation
     Dosage: 100 MG, Q8H
     Route: 048
     Dates: start: 20170224, end: 20220423
  7. MAGNESIUM OXIDE [Concomitant]
     Active Substance: MAGNESIUM OXIDE
     Indication: Constipation
     Dosage: 330 MG, Q8H
     Route: 048
     Dates: start: 20170224, end: 20220423
  8. PARSACLISIB [Concomitant]
     Active Substance: PARSACLISIB
     Indication: Follicular lymphoma
     Dosage: UNK
     Route: 065
     Dates: start: 20200930
  9. RITUXAN [Concomitant]
     Active Substance: RITUXIMAB
     Indication: Follicular lymphoma
     Dosage: UNK
     Route: 042
     Dates: start: 20220201
  10. REVLIMID [Concomitant]
     Active Substance: LENALIDOMIDE
     Indication: Follicular lymphoma
     Dosage: UNK
     Route: 065
     Dates: start: 20220201

REACTIONS (2)
  - COVID-19 pneumonia [Fatal]
  - SARS-CoV-2 test positive [Fatal]

NARRATIVE: CASE EVENT DATE: 20220331
